FAERS Safety Report 7506221-3 (Version None)
Quarter: 2011Q2

REPORT INFORMATION
  Report Type: 
  Country: None (occurrence: None)
  Receive Date: 20110526
  Receipt Date: 20110513
  Transmission Date: 20111010
  Serious: Yes (Other)
  Sender: FDA-Public Use
  Company Number: KR-JNJFOC-20110506488

PATIENT
  Age: 20 Year
  Sex: Male

DRUGS (3)
  1. RISPERDAL [Suspect]
     Indication: PRODUCT USED FOR UNKNOWN INDICATION
     Route: 048
     Dates: start: 20110501, end: 20110501
  2. RISPERDAL [Suspect]
     Route: 048
     Dates: start: 20110501
  3. INVEGA [Suspect]
     Indication: PRODUCT USED FOR UNKNOWN INDICATION
     Route: 048
     Dates: start: 20110401

REACTIONS (3)
  - ASTHENIA [None]
  - SUICIDAL IDEATION [None]
  - AKATHISIA [None]
